FAERS Safety Report 19065879 (Version 5)
Quarter: 2021Q3

REPORT INFORMATION
  Report Type: Report from Study
  Country: US (occurrence: US)
  Receive Date: 20210327
  Receipt Date: 20210915
  Transmission Date: 20211014
  Serious: Yes (Other)
  Sender: FDA-Public Use
  Company Number: NVSC2021US061988

PATIENT
  Sex: Male

DRUGS (4)
  1. COREG [Suspect]
     Active Substance: CARVEDILOL
     Indication: PRODUCT USED FOR UNKNOWN INDICATION
     Dosage: UNK
     Route: 065
  2. ENTRESTO [Suspect]
     Active Substance: SACUBITRIL\VALSARTAN
     Indication: PRODUCT USED FOR UNKNOWN INDICATION
     Dosage: 100 MG, BID (49/51 MG)
     Route: 048
     Dates: start: 202102
  3. AMLODIPIN [Suspect]
     Active Substance: AMLODIPINE BESYLATE
     Dosage: UNK (REDUCED DOSE)
     Route: 065
  4. AMLODIPIN [Suspect]
     Active Substance: AMLODIPINE BESYLATE
     Indication: PRODUCT USED FOR UNKNOWN INDICATION
     Dosage: UNK
     Route: 065

REACTIONS (9)
  - Dizziness [Recovering/Resolving]
  - Fluid retention [Unknown]
  - Product dose omission issue [Unknown]
  - Atrial fibrillation [Not Recovered/Not Resolved]
  - Paraesthesia [Unknown]
  - Memory impairment [Recovering/Resolving]
  - Cough [Unknown]
  - Hypotension [Unknown]
  - Skin wrinkling [Unknown]
